FAERS Safety Report 7625860-2 (Version None)
Quarter: 2011Q3

REPORT INFORMATION
  Report Type: 
  Country: None (occurrence: None)
  Receive Date: 20110701
  Receipt Date: 20100510
  Transmission Date: 20111222
  Serious: Yes (Other)
  Sender: FDA-Public Use
  Company Number: 7004532

PATIENT
  Age: 53 Year
  Sex: Female

DRUGS (7)
  1. BUPROPION HCL [Concomitant]
  2. EFFEXOR XR [Concomitant]
  3. CARBAMAZEPINE [Concomitant]
  4. REBIF [Suspect]
     Indication: MULTIPLE SCLEROSIS
     Dosage: 8 MCG, 3 IN 1 WK, SUBCUTANEOUS
     Route: 058
     Dates: start: 20100401, end: 20100420
  5. LOVASTATIN [Concomitant]
  6. GEODON [Concomitant]
  7. NEURONTIN [Concomitant]

REACTIONS (2)
  - SUICIDAL IDEATION [None]
  - DEPRESSION [None]
